FAERS Safety Report 13140763 (Version 2)
Quarter: 2017Q1

REPORT INFORMATION
  Report Type: Other
  Country: JP (occurrence: JP)
  Receive Date: 20170123
  Receipt Date: 20170317
  Transmission Date: 20170428
  Serious: Yes (Other)
  Sender: FDA-Public Use
  Company Number: JP-EMD SERONO-8136749

PATIENT
  Age: 38 Year
  Sex: Female

DRUGS (3)
  1. GONAL-F [Suspect]
     Active Substance: FOLLITROPIN
     Indication: OVULATION INDUCTION
     Route: 058
     Dates: start: 201101, end: 201101
  2. GONAL-F [Suspect]
     Active Substance: FOLLITROPIN
     Route: 058
     Dates: start: 201110, end: 201110
  3. HCG [Concomitant]
     Active Substance: GONADOTROPHIN, CHORIONIC
     Indication: OVULATION INDUCTION
     Route: 065

REACTIONS (2)
  - Abortion missed [Recovered/Resolved]
  - Hydrometra [Recovered/Resolved]

NARRATIVE: CASE EVENT DATE: 201101
